FAERS Safety Report 8120070-7 (Version None)
Quarter: 2012Q1

REPORT INFORMATION
  Report Type: 
  Country: None (occurrence: None)
  Receive Date: 20120207
  Receipt Date: 20120203
  Transmission Date: 20120608
  Serious: Yes (Hospitalization, Other)
  Sender: FDA-Public Use
  Company Number: US-PFIZER INC-2012030840

PATIENT
  Sex: Male
  Weight: 131.52 kg

DRUGS (2)
  1. PRAVASTATIN [Concomitant]
     Indication: BLOOD CHOLESTEROL INCREASED
     Dosage: UNK
  2. LYRICA [Suspect]
     Indication: NEUROPATHY PERIPHERAL
     Dosage: 75 MG, 2X/DAY
     Route: 048
     Dates: start: 20110706

REACTIONS (5)
  - WEIGHT INCREASED [None]
  - ARTERIAL OCCLUSIVE DISEASE [None]
  - PERICARDIAL EFFUSION [None]
  - THROMBOSIS [None]
  - OEDEMA PERIPHERAL [None]
